FAERS Safety Report 19405385 (Version 1)
Quarter: 2021Q2

REPORT INFORMATION
  Report Type: Spontaneous
  Country: US (occurrence: US)
  Receive Date: 20210611
  Receipt Date: 20210611
  Transmission Date: 20210717
  Serious: Yes (Other)
  Sender: FDA-Public Use
  Company Number: US-BRISTOL-MYERS SQUIBB COMPANY-BMS-2021-054044

PATIENT
  Age: 77 Year
  Sex: Female

DRUGS (2)
  1. DROXIA [Suspect]
     Active Substance: HYDROXYUREA
     Indication: CEREBROVASCULAR ACCIDENT
     Dosage: 500 MILLIGRAM, MONDAY, WEDNESDAY, FRIDAY
     Route: 065
     Dates: start: 2011
  2. HYDREA [Suspect]
     Active Substance: HYDROXYUREA
     Indication: PRODUCT USED FOR UNKNOWN INDICATION
     Dosage: 10 CAPS A WEEK
     Route: 065

REACTIONS (4)
  - Lymphoedema [Unknown]
  - Intentional product use issue [Unknown]
  - Squamous cell carcinoma of skin [Unknown]
  - Anaemia [Unknown]
